FAERS Safety Report 16988418 (Version 1)
Quarter: 2019Q4

REPORT INFORMATION
  Report Type: Spontaneous
  Country: US (occurrence: US)
  Receive Date: 20190919
  Receipt Date: 20190919
  Transmission Date: 20200122
  Serious: No
  Sender: FDA-Public Use
  Company Number: None

PATIENT
  Age: 71 Year
  Sex: Male

DRUGS (2)
  1. GABAPENTIN 300MG [Suspect]
     Active Substance: GABAPENTIN
     Indication: ANXIETY
  2. GABAPENTIN 300MG [Suspect]
     Active Substance: GABAPENTIN
     Indication: INSOMNIA
     Route: 048
     Dates: start: 20180328, end: 20180413

REACTIONS (3)
  - Petechiae [None]
  - International normalised ratio increased [None]
  - Prothrombin time prolonged [None]

NARRATIVE: CASE EVENT DATE: 20180413
